FAERS Safety Report 8510265-2 (Version None)
Quarter: 2012Q3

REPORT INFORMATION
  Report Type: 
  Country: None (occurrence: None)
  Receive Date: 20120713
  Receipt Date: 20120703
  Transmission Date: 20120928
  Serious: Yes (Other)
  Sender: FDA-Public Use
  Company Number: GB-BAXTER-2012BAX010472

PATIENT
  Sex: Female

DRUGS (10)
  1. GLUCOSE 50% W/V CONCENTRATE FOR SOLUTION FOR INFUSION [Suspect]
  2. TRACE METAL ADDITIVE IN NACL [Suspect]
  3. SODIUM CHLORIDE [Suspect]
  4. CLINOLEIC 20% [Suspect]
     Route: 065
  5. WATER FOR INJECTIONS BP [Suspect]
     Route: 042
  6. SODIUM GLYCOPHOS [Suspect]
  7. POTASSIUM CHLORIDE [Suspect]
  8. CALCIUM CHLORIDE [Suspect]
  9. AMINOVEN [Suspect]
  10. MAGNESIUM SULFATE [Suspect]
     Route: 042

REACTIONS (3)
  - DRUG ADMINISTRATION ERROR [None]
  - MALAISE [None]
  - TREMOR [None]
